FAERS Safety Report 8294409-6 (Version None)
Quarter: 2012Q2

REPORT INFORMATION
  Report Type: 
  Country: None (occurrence: None)
  Receive Date: 20120413
  Receipt Date: 20120404
  Transmission Date: 20120825
  Serious: Yes (Disabling, Other)
  Sender: FDA-Public Use
  Company Number: 2010MA005106

PATIENT
  Sex: Male
  Weight: 79.3795 kg

DRUGS (21)
  1. MORPHINE [Concomitant]
  2. RESTORIL [Concomitant]
  3. CELEBREX [Concomitant]
  4. OXYCODONE HCL [Concomitant]
  5. SULFAMETHOXAZOLE AND TRIMETHOPRIM [Concomitant]
  6. METOCLOPRAMIDE [Suspect]
     Indication: NAUSEA
     Dosage: 10 MG;Q6H;PO
     Route: 048
     Dates: start: 20080624, end: 20100301
  7. METOCLOPRAMIDE [Suspect]
     Indication: GASTROOESOPHAGEAL REFLUX DISEASE
     Dosage: 10 MG;Q6H;PO
     Route: 048
     Dates: start: 20080624, end: 20100301
  8. CARISOPRODOL [Concomitant]
  9. PERCOCET [Concomitant]
  10. CLONAZEPAM [Concomitant]
  11. COTAB AX [Concomitant]
  12. SKELAXIN [Concomitant]
  13. TEMAZEPAM [Concomitant]
  14. AMOXICILLIN [Concomitant]
  15. LEVITRA [Concomitant]
  16. OXYCODONE HCL AND ACETAMINOPHEN [Concomitant]
  17. VIAGRA [Concomitant]
  18. METHYLPREDNISOLONE [Concomitant]
  19. SOMA [Concomitant]
  20. CIPROFLOXACIN HCL [Concomitant]
  21. FLOMAX [Concomitant]

REACTIONS (24)
  - MALAISE [None]
  - NECK PAIN [None]
  - ARTHRALGIA [None]
  - INJURY [None]
  - DEPRESSION [None]
  - FATIGUE [None]
  - EXTRAPYRAMIDAL DISORDER [None]
  - ECONOMIC PROBLEM [None]
  - AKATHISIA [None]
  - MUSCLE TWITCHING [None]
  - MUSCULOSKELETAL STIFFNESS [None]
  - GAIT DISTURBANCE [None]
  - RESPIRATORY DISORDER [None]
  - INTERVERTEBRAL DISC DEGENERATION [None]
  - BACK PAIN [None]
  - QUALITY OF LIFE DECREASED [None]
  - FEELING ABNORMAL [None]
  - TARDIVE DYSKINESIA [None]
  - EMOTIONAL DISORDER [None]
  - ANXIETY [None]
  - SLEEP DISORDER [None]
  - PAIN IN EXTREMITY [None]
  - DYSGRAPHIA [None]
  - AUTONOMIC NERVOUS SYSTEM IMBALANCE [None]
